FAERS Safety Report 8625171-2 (Version None)
Quarter: 2012Q3

REPORT INFORMATION
  Report Type: 
  Country: None (occurrence: None)
  Receive Date: 20120827
  Receipt Date: 20120822
  Transmission Date: 20120928
  Serious: Yes (Hospitalization, Other)
  Sender: FDA-Public Use
  Company Number: PHHO2011US15481

PATIENT
  Sex: Female
  Weight: 54.1 kg

DRUGS (11)
  1. PROGRAF [Suspect]
     Indication: RENAL TRANSPLANT
     Dosage: 0.5 MG, BID
     Route: 048
     Dates: start: 20110128
  2. PROGRAF [Suspect]
     Indication: IMMUNOSUPPRESSION
  3. CERTICAN [Suspect]
     Dosage: 1.5 MG, BID
     Route: 048
     Dates: start: 20110203, end: 20110909
  4. LEFLUNOMIDE [Suspect]
  5. CERTICAN [Suspect]
     Indication: RENAL TRANSPLANT
     Dosage: 0.75 MG, BID
     Route: 048
     Dates: start: 20110128, end: 20110202
  6. MYCOPHENOLATE MEFETIL [Suspect]
     Indication: RENAL TRANSPLANT
     Dosage: 250 MG, BID
     Route: 048
     Dates: start: 20120124, end: 20120129
  7. PREDNISONE TAB [Suspect]
     Indication: RENAL TRANSPLANT
     Dosage: 2.5 MG, QD
     Route: 048
     Dates: start: 20110128
  8. LASIX [Concomitant]
  9. PREDNISONE TAB [Suspect]
     Indication: IMMUNOSUPPRESSION
  10. VALCYTE [Suspect]
     Indication: CYTOMEGALOVIRUS VIRAEMIA
     Dosage: 450 MG, BID
     Route: 048
     Dates: start: 20110825
  11. CERTICAN [Suspect]
     Dosage: 0.75 MG, BID
     Route: 048
     Dates: start: 20110910, end: 20120117

REACTIONS (6)
  - PNEUMONIA PRIMARY ATYPICAL [None]
  - DIARRHOEA [None]
  - CYTOMEGALOVIRUS VIRAEMIA [None]
  - PYREXIA [None]
  - THROMBOCYTOPENIA [None]
  - HYPOTENSION [None]
